FAERS Safety Report 23100344 (Version 1)
Quarter: 2023Q4

REPORT INFORMATION
  Report Type: Spontaneous
  Country: US (occurrence: None)
  Receive Date: 20231020
  Receipt Date: 20231020
  Transmission Date: 20240110
  Serious: Yes (Hospitalization)
  Sender: FDA-Public Use
  Company Number: None

PATIENT
  Age: 93 Year
  Sex: Male
  Weight: 79.8 kg

DRUGS (1)
  1. IOHEXOL [Suspect]
     Active Substance: IOHEXOL
     Dosage: FREQUENCY : ONCE;?
     Route: 042
     Dates: start: 20221129, end: 20221129

REACTIONS (2)
  - Acute kidney injury [None]
  - Contrast media reaction [None]

NARRATIVE: CASE EVENT DATE: 20221129
